FAERS Safety Report 9257211 (Version 1)
Quarter: 2013Q2

REPORT INFORMATION
  Report Type: Spontaneous
  Country: BR (occurrence: BR)
  Receive Date: 20130426
  Receipt Date: 20130426
  Transmission Date: 20140414
  Serious: Yes (Other)
  Sender: FDA-Public Use
  Company Number: PHHY2013BR039682

PATIENT
  Age: 21 Year
  Sex: Female

DRUGS (2)
  1. FORASEQ [Suspect]
     Indication: ASTHMA
     Dosage: 1 DF, UNK
     Dates: start: 20130415
  2. MIFLASONE [Suspect]
     Indication: ASTHMA
     Dosage: 1 DF, Q12H
     Dates: start: 20130415

REACTIONS (2)
  - Hepatic pain [Not Recovered/Not Resolved]
  - Abdominal pain [Not Recovered/Not Resolved]
